FAERS Safety Report 6009125-0 (Version None)
Quarter: 2008Q4

REPORT INFORMATION
  Report Type: 
  Country: None (occurrence: None)
  Receive Date: 20081216
  Receipt Date: 20081203
  Transmission Date: 20090506
  Serious: Yes (Death)
  Sender: FDA-Public Use
  Company Number: 2008-03617

PATIENT
  Age: 70 Year
  Sex: Male

DRUGS (4)
  1. VELCADE [Suspect]
     Indication: MULTIPLE MYELOMA
     Dosage: 1 MG/M2, IV BOLUS
     Route: 040
     Dates: start: 20050510, end: 20050513
  2. MELPHALAN (MELPHALAN) [Suspect]
     Indication: MULTIPLE MYELOMA
     Dosage: 0.15 MG/KG, ORAL
     Route: 048
     Dates: start: 20050510, end: 20050513
  3. THALIDOMIDE [Suspect]
     Indication: MULTIPLE MYELOMA
     Dosage: 100 MG
     Dates: start: 20050510, end: 20050513
  4. DEXAMETHASONE TAB [Suspect]
     Indication: MULTIPLE MYELOMA
     Dosage: 12 MG/M2
     Dates: start: 20050510, end: 20050513

REACTIONS (4)
  - NECROTISING FASCIITIS [None]
  - PYREXIA [None]
  - SEPTIC SHOCK [None]
  - SHOCK [None]
